FAERS Safety Report 7727538-3 (Version None)
Quarter: 2011Q3

REPORT INFORMATION
  Report Type: 
  Country: None (occurrence: None)
  Receive Date: 20110902
  Receipt Date: 20110830
  Transmission Date: 20111222
  Serious: No
  Sender: FDA-Public Use
  Company Number: US-PFIZER INC-2011202682

PATIENT
  Sex: Female
  Weight: 29 kg

DRUGS (1)
  1. GENOTROPIN [Suspect]
     Dosage: 1 MG, 1X/DAY
     Route: 058
     Dates: start: 20100603, end: 20110821

REACTIONS (4)
  - HEADACHE [None]
  - LABORATORY TEST ABNORMAL [None]
  - PIGMENTATION DISORDER [None]
  - DEPRESSED MOOD [None]
